FAERS Safety Report 8132081-6 (Version None)
Quarter: 2012Q1

REPORT INFORMATION
  Report Type: 
  Country: None (occurrence: None)
  Receive Date: 20120213
  Receipt Date: 20120208
  Transmission Date: 20120608
  Serious: Yes (Hospitalization, Other)
  Sender: FDA-Public Use
  Company Number: IE-PFIZER INC-2011271660

PATIENT
  Age: 66 Year
  Sex: Male
  Weight: 104 kg

DRUGS (11)
  1. ACETYLSALICYLIC ACID [Concomitant]
     Indication: MYOCARDIAL ISCHAEMIA
     Dosage: 75 MG, UNK
     Route: 048
  2. SUTENT [Suspect]
     Indication: METASTATIC RENAL CELL CARCINOMA
     Dosage: 37.5 MG, 1X/DAY
     Route: 048
     Dates: start: 20111026, end: 20111027
  3. VALSARTAN [Concomitant]
     Indication: MYOCARDIAL ISCHAEMIA
     Dosage: 80 MG, UNK
     Route: 048
  4. ACETYLSALICYLIC ACID [Concomitant]
     Indication: BLOOD PRESSURE INCREASED
  5. ACETYLSALICYLIC ACID [Concomitant]
     Indication: STENT PLACEMENT
  6. VALSARTAN [Concomitant]
     Indication: BLOOD PRESSURE INCREASED
  7. COLCHICINE [Concomitant]
     Indication: GOUT
     Dosage: 800 MG, UNK
     Route: 048
     Dates: end: 20111101
  8. CRESTOR [Concomitant]
     Indication: MYOCARDIAL ISCHAEMIA
     Dosage: 10 MG, UNK
     Route: 048
  9. FLUTICASONE PROPIONATE/SALMETEROL [Concomitant]
     Indication: CHRONIC OBSTRUCTIVE PULMONARY DISEASE
     Dosage: 1 DF, 2X/DAY
     Route: 055
  10. VALSARTAN [Concomitant]
     Indication: STENT PLACEMENT
  11. RAMIPRIL [Concomitant]
     Indication: BLOOD PRESSURE INCREASED
     Dosage: 10 MG, UNK
     Route: 048

REACTIONS (5)
  - BRONCHOSPASM [None]
  - TUMOUR HAEMORRHAGE [None]
  - CHRONIC OBSTRUCTIVE PULMONARY DISEASE [None]
  - DYSPNOEA [None]
  - HAEMATURIA [None]
